FAERS Safety Report 18151724 (Version 1)
Quarter: 2020Q3

REPORT INFORMATION
  Report Type: Spontaneous
  Country: DE (occurrence: DE)
  Receive Date: 20200814
  Receipt Date: 20200814
  Transmission Date: 20201103
  Serious: Yes (Hospitalization)
  Sender: FDA-Public Use
  Company Number: DE-PFIZER INC-2020314257

PATIENT
  Age: 68 Year
  Sex: Female

DRUGS (7)
  1. HUMALOG MIX75/25 [Concomitant]
     Active Substance: INSULIN LISPRO
     Dosage: UNK
     Route: 058
  2. HUMALOG MIX50/50 [Concomitant]
     Active Substance: INSULIN LISPRO
     Dosage: UNK
     Route: 058
  3. TAMSULOSIN [Concomitant]
     Active Substance: TAMSULOSIN
     Dosage: 0.4 MG, 1?0?0?0
     Route: 048
  4. BISOPROLOL [Concomitant]
     Active Substance: BISOPROLOL
     Dosage: 2.5 MG, 1?0?1?0
     Route: 048
  5. COLECALCIFEROL [Concomitant]
     Active Substance: CHOLECALCIFEROL
     Dosage: 20000 IU, WEEKLY (WEDNESDAYS)
     Route: 048
  6. AMLODIPINE BESILATE [Suspect]
     Active Substance: AMLODIPINE BESYLATE
     Dosage: 10 MG, 1?0?1?0
     Route: 048
  7. TORASEMID [Suspect]
     Active Substance: TORSEMIDE
     Dosage: 100 MG, 1?1?0.5?0
     Route: 048

REACTIONS (7)
  - Dyspnoea [Unknown]
  - Weight increased [Unknown]
  - Tachypnoea [Unknown]
  - General physical health deterioration [Unknown]
  - Wheezing [Unknown]
  - Fatigue [Unknown]
  - Oedema peripheral [Unknown]
